FAERS Safety Report 9168831 (Version 1)
Quarter: 2013Q1

REPORT INFORMATION
  Report Type: Spontaneous
  Country: US (occurrence: US)
  Receive Date: 20130318
  Receipt Date: 20130318
  Transmission Date: 20140127
  Serious: No
  Sender: FDA-Public Use
  Company Number: US-BAYER-2013-026904

PATIENT
  Age: 73 Year
  Sex: Male

DRUGS (2)
  1. LEVITRA [Suspect]
     Indication: ERECTILE DYSFUNCTION
     Dosage: 1 DF, 2-3 TIMES PER WEEK
     Route: 048
     Dates: start: 2007, end: 20130227
  2. AMLODIPINE W/BENAZEPRIL [Concomitant]
     Indication: BLOOD PRESSURE MANAGEMENT
     Dosage: 5-20 MG.

REACTIONS (3)
  - Drug ineffective [None]
  - Drug ineffective [None]
  - Drug ineffective [None]
